FAERS Safety Report 8519990-0 (Version None)
Quarter: 2012Q3

REPORT INFORMATION
  Report Type: 
  Country: None (occurrence: None)
  Receive Date: 20120719
  Receipt Date: 20120712
  Transmission Date: 20120928
  Serious: No
  Sender: FDA-Public Use
  Company Number: US-PFIZER INC-2011054608

PATIENT
  Sex: Female
  Weight: 72.562 kg

DRUGS (4)
  1. PLAQUENIL [Concomitant]
     Dosage: UNK
  2. NAPROXEN [Concomitant]
     Dosage: UNK
  3. PREVACID [Concomitant]
     Dosage: UNK, 2X/DAY
  4. REVATIO [Suspect]
     Indication: SKIN ULCER
     Dosage: UNK
     Route: 048

REACTIONS (5)
  - SCAB [None]
  - IMPAIRED HEALING [None]
  - PRURITUS [None]
  - LIMB INJURY [None]
  - PAIN IN EXTREMITY [None]
